FAERS Safety Report 9043650 (Version 1)
Quarter: 2013Q1

REPORT INFORMATION
  Report Type: Report from Study
  Country: US (occurrence: US)
  Receive Date: 20130129
  Receipt Date: 20130129
  Transmission Date: 20140127
  Serious: No
  Sender: FDA-Public Use
  Company Number: US-ABBOTT-12P-163-0912907-00

PATIENT
  Age: 46 Year
  Sex: Male

DRUGS (17)
  1. HUMIRA 40 MG/0.8 ML PEN [Suspect]
     Indication: CROHN^S DISEASE
     Dates: start: 2010, end: 2010
  2. HUMIRA 40 MG/0.8 ML PEN [Suspect]
     Indication: ARTHRITIS
     Dosage: RESTART
  3. NEXIUM [Concomitant]
     Indication: BARRETT^S OESOPHAGUS
     Route: 048
  4. LORATADINE [Concomitant]
     Indication: PRODUCT USED FOR UNKNOWN INDICATION
     Route: 048
  5. LOPROX 1% SHAMPOO [Concomitant]
     Indication: DERMATITIS
  6. FLOVENT HSA [Concomitant]
     Indication: ASTHMA
     Dosage: DAILY
  7. PROAIR [Concomitant]
     Indication: ASTHMA
  8. PREDNISONE [Concomitant]
     Indication: PRODUCT USED FOR UNKNOWN INDICATION
     Dosage: 3 MG DAILY, TAPERING
     Route: 048
  9. WELLBUTRIN [Concomitant]
     Indication: DEPRESSION
     Dosage: DAILY
     Route: 048
  10. CALCIUM [Concomitant]
     Indication: PRODUCT USED FOR UNKNOWN INDICATION
     Dosage: DAILY
     Route: 048
  11. VITAMIN D [Concomitant]
     Indication: PRODUCT USED FOR UNKNOWN INDICATION
     Dosage: DAILY
     Route: 048
  12. MULTIVITAMIN [Concomitant]
     Indication: PRODUCT USED FOR UNKNOWN INDICATION
     Dosage: DAILY
     Route: 048
  13. FISH OIL [Concomitant]
     Indication: PRODUCT USED FOR UNKNOWN INDICATION
     Dosage: DAILY
     Route: 048
  14. FINACEA 15% GEL [Concomitant]
     Indication: ROSACEA
  15. METRONIDAZOLE [Concomitant]
     Indication: ROSACEA
  16. AZITHROMYCIN [Concomitant]
     Indication: PROPHYLAXIS
     Route: 048
  17. SULFASALAZINE [Concomitant]
     Indication: PRODUCT USED FOR UNKNOWN INDICATION
     Dosage: 500 MG DAILY
     Route: 048

REACTIONS (2)
  - Oropharyngeal pain [Not Recovered/Not Resolved]
  - Nasal discharge discolouration [Not Recovered/Not Resolved]
